FAERS Safety Report 21450029 (Version 1)
Quarter: 2022Q4

REPORT INFORMATION
  Report Type: Spontaneous
  Country: US (occurrence: None)
  Receive Date: 20221012
  Receipt Date: 20221012
  Transmission Date: 20230112
  Serious: Yes (Hospitalization)
  Sender: FDA-Public Use
  Company Number: None

PATIENT
  Age: 67 Year
  Sex: Male
  Weight: 104.5 kg

DRUGS (5)
  1. BENDAMUSTINE HYDROCHLORIDE [Suspect]
     Active Substance: BENDAMUSTINE HYDROCHLORIDE
     Dates: end: 20220829
  2. BENDAMUSTINE HYDROCHLORIDE [Suspect]
     Active Substance: BENDAMUSTINE HYDROCHLORIDE
     Dates: end: 20221004
  3. BENDAMUSTINE HYDROCHLORIDE [Suspect]
     Active Substance: BENDAMUSTINE HYDROCHLORIDE
     Dates: end: 20220829
  4. CYTARABINE [Suspect]
     Active Substance: CYTARABINE
     Dates: end: 20221004
  5. RITUXIMAB [Suspect]
     Active Substance: RITUXIMAB
     Dates: end: 20221003

REACTIONS (6)
  - Thrombocytopenia [None]
  - Dyspnoea [None]
  - Hyperhidrosis [None]
  - Hyperhidrosis [None]
  - Pyrexia [None]
  - Bacterial infection [None]

NARRATIVE: CASE EVENT DATE: 20221010
